FAERS Safety Report 15448254 (Version 1)
Quarter: 2018Q3

REPORT INFORMATION
  Report Type: Report from Study
  Country: None (occurrence: US)
  Receive Date: 20180929
  Receipt Date: 20180929
  Transmission Date: 20181010
  Serious: Yes (Other)
  Sender: FDA-Public Use
  Company Number: US-ABBVIE-18K-163-2501251-00

PATIENT
  Age: 50 Year
  Sex: Female

DRUGS (2)
  1. VENCLEXTA [Suspect]
     Active Substance: VENETOCLAX
     Indication: ACUTE MYELOID LEUKAEMIA
  2. VENCLEXTA [Suspect]
     Active Substance: VENETOCLAX
     Indication: ACUTE MYELOID LEUKAEMIA
     Dosage: 100MG TWO TABLETS
     Route: 048
     Dates: start: 20180122, end: 2018

REACTIONS (2)
  - Product use in unapproved indication [Unknown]
  - Donor leukocyte infusion [Not Recovered/Not Resolved]

NARRATIVE: CASE EVENT DATE: 20180122
